FAERS Safety Report 6302996-X (Version None)
Quarter: 2009Q3

REPORT INFORMATION
  Report Type: 
  Country: None (occurrence: None)
  Receive Date: 20090810
  Receipt Date: 20090731
  Transmission Date: 20100115
  Serious: Yes (Death)
  Sender: FDA-Public Use
  Company Number: JP-ASTRAZENECA-2009SE03707

PATIENT
  Sex: Male
  Weight: 52 kg

DRUGS (3)
  1. ECARD [Suspect]
     Indication: HYPERTENSION
     Route: 048
     Dates: start: 20090516, end: 20090601
  2. PREDONIN [Suspect]
     Indication: ASTHMA
     Route: 048
     Dates: start: 20090516, end: 20090601
  3. AMLODIN OD [Concomitant]
     Indication: HYPERTENSION
     Route: 048
     Dates: end: 20090601

REACTIONS (3)
  - CANDIDA SEPSIS [None]
  - DISSEMINATED INTRAVASCULAR COAGULATION [None]
  - PNEUMOCYSTIS JIROVECI PNEUMONIA [None]
